FAERS Safety Report 17320496 (Version 1)
Quarter: 2020Q1

REPORT INFORMATION
  Report Type: Spontaneous
  Country: US (occurrence: US)
  Receive Date: 20200126
  Receipt Date: 20200126
  Transmission Date: 20200409
  Serious: No
  Sender: FDA-Public Use
  Company Number: US-ACORDA-ACO_157088_2019

PATIENT
  Age: 39 Year
  Sex: Female

DRUGS (2)
  1. AMPYRA [Suspect]
     Active Substance: DALFAMPRIDINE
     Indication: PRODUCT USED FOR UNKNOWN INDICATION
     Dosage: 10 MG, BID
     Route: 048
     Dates: start: 201801, end: 201812
  2. AMPYRA [Suspect]
     Active Substance: DALFAMPRIDINE
     Dosage: 10 MG, BID
     Route: 048
     Dates: start: 201901

REACTIONS (5)
  - Condition aggravated [Unknown]
  - Nausea [Recovering/Resolving]
  - Visual impairment [Recovering/Resolving]
  - Dizziness [Recovering/Resolving]
  - Ill-defined disorder [Unknown]

NARRATIVE: CASE EVENT DATE: 20190101
